FAERS Safety Report 4380685-9 (Version None)
Quarter: 2004Q2

REPORT INFORMATION
  Report Type: 
  Country: None (occurrence: None)
  Receive Date: 20040616
  Receipt Date: 20040602
  Transmission Date: 20050107
  Serious: Yes (Death, Hospitalization)
  Sender: FDA-Public Use
  Company Number: 2004217513DE

PATIENT
  Sex: Female

DRUGS (6)
  1. DOXORUBICIN HCL [Suspect]
     Indication: NON-HODGKIN'S LYMPHOMA
     Dosage: 90 MG, PRN, SUBCUTANEOUS
     Route: 058
     Dates: start: 20031224
  2. VINCRISTINE SULFATE [Suspect]
     Indication: NON-HODGKIN'S LYMPHOMA
     Dosage: 2 MG PRN
     Dates: start: 20031224
  3. NEULASTA (PEGFILGRASTIM) [Suspect]
     Indication: NON-HODGKIN'S LYMPHOMA
     Dosage: 6 MG, PRN, SUBCUTANEOUS
     Route: 058
     Dates: start: 20040320
  4. CYCLOPHOSPHAMIDE [Suspect]
     Indication: NON-HODGKIN'S LYMPHOMA
     Dosage: 1400 MG, PRN
     Dates: start: 20031224
  5. RITUXIMAB [Suspect]
     Indication: NON-HODGKIN'S LYMPHOMA
     Dosage: 700 MG, PRN
     Dates: start: 20040119
  6. PREDNISOLONE [Concomitant]

REACTIONS (4)
  - CHEST PAIN [None]
  - MULTI-ORGAN FAILURE [None]
  - PANCYTOPENIA [None]
  - SEPTIC SHOCK [None]
